FAERS Safety Report 19426372 (Version 1)
Quarter: 2021Q2

REPORT INFORMATION
  Report Type: Spontaneous
  Country: US (occurrence: US)
  Receive Date: 20210617
  Receipt Date: 20210617
  Transmission Date: 20210717
  Serious: Yes (Other)
  Sender: FDA-Public Use
  Company Number: US-AUROBINDO-AUR-APL-2021-025167

PATIENT
  Age: 38 Year
  Sex: Male
  Weight: 94 kg

DRUGS (3)
  1. IBUPROFEN. [Suspect]
     Active Substance: IBUPROFEN
     Indication: BACK PAIN
     Dosage: 600 MILLIGRAM, FOUR TIMES/DAY
     Route: 065
  2. MEPERIDINE [Concomitant]
     Active Substance: MEPERIDINE
     Indication: PRODUCT USED FOR UNKNOWN INDICATION
     Dosage: UNK
     Route: 065
  3. ACETAMINOPHEN;CODEINE [Concomitant]
     Active Substance: ACETAMINOPHEN\CODEINE PHOSPHATE
     Dosage: UNK
     Route: 065

REACTIONS (3)
  - Oliguria [Recovered/Resolved]
  - Renal tubular necrosis [Recovered/Resolved]
  - Acute kidney injury [Recovered/Resolved]
